FAERS Safety Report 10128124 (Version 2)
Quarter: 2014Q2

REPORT INFORMATION
  Report Type: Spontaneous
  Country: BE (occurrence: BE)
  Receive Date: 20140428
  Receipt Date: 20140606
  Transmission Date: 20141212
  Serious: Yes (Other)
  Sender: FDA-Public Use
  Company Number: BE-BIOGENIDEC-2014BI037764

PATIENT
  Age: 65 Year
  Sex: Female
  Weight: 82 kg

DRUGS (10)
  1. TYSABRI [Suspect]
     Indication: MULTIPLE SCLEROSIS
     Route: 042
     Dates: start: 20101001, end: 20140310
  2. KREDEX [Concomitant]
  3. ZOCOR [Concomitant]
  4. TOPAMAX [Concomitant]
  5. CARDIOASPIRINE [Concomitant]
  6. OXYBUTYNINE [Concomitant]
  7. SIFROL [Concomitant]
  8. ESTREVA [Concomitant]
  9. UTROGESTAN [Concomitant]
  10. LONARID [Concomitant]

REACTIONS (1)
  - Invasive lobular breast carcinoma [Not Recovered/Not Resolved]
